FAERS Safety Report 11659905 (Version 1)
Quarter: 2015Q4

REPORT INFORMATION
  Report Type: Spontaneous
  Country: None (occurrence: None)
  Receive Date: 20151023
  Receipt Date: 20151023
  Transmission Date: 20160304
  Serious: No
  Sender: FDA-Public Use
  Company Number: None

PATIENT
  Age: 20 Year
  Sex: Female
  Weight: 68.95 kg

DRUGS (1)
  1. REMICADE [Suspect]
     Active Substance: INFLIXIMAB
     Dosage: 200MG  EVEERY 8 WEEKS  INTRAVENOUS
     Route: 042

REACTIONS (4)
  - Dyspnoea [None]
  - Flushing [None]
  - Chest discomfort [None]
  - Sensation of foreign body [None]

NARRATIVE: CASE EVENT DATE: 20151022
